FAERS Safety Report 21017468 (Version 1)
Quarter: 2022Q2

REPORT INFORMATION
  Report Type: Spontaneous
  Country: GB (occurrence: GB)
  Receive Date: 20220628
  Receipt Date: 20220628
  Transmission Date: 20220721
  Serious: Yes (Other)
  Sender: FDA-Public Use
  Company Number: GB-EXELIXIS-CABO-22053246

PATIENT
  Age: 58 Year
  Sex: Male

DRUGS (2)
  1. CABOMETYX [Suspect]
     Active Substance: CABOZANTINIB S-MALATE
     Indication: Clear cell renal cell carcinoma
     Dosage: 60 MG, QD
     Dates: start: 201811, end: 202012
  2. CABOMETYX [Suspect]
     Active Substance: CABOZANTINIB S-MALATE
     Dosage: UNK

REACTIONS (8)
  - Cancer pain [Unknown]
  - Postoperative wound infection [Unknown]
  - Pleural disorder [Unknown]
  - Wound dehiscence [Recovered/Resolved]
  - Metastases to lung [Unknown]
  - Metastases to adrenals [Unknown]
  - Metastases to bone [Unknown]
  - Metastases to spine [Unknown]

NARRATIVE: CASE EVENT DATE: 20201101
